FAERS Safety Report 17768730 (Version 3)
Quarter: 2024Q3

REPORT INFORMATION
  Report Type: Spontaneous
  Country: DE (occurrence: DE)
  Receive Date: 20200512
  Receipt Date: 20240926
  Transmission Date: 20241017
  Serious: Yes (Other)
  Sender: ALKEM
  Company Number: DE-MEDICE ARZNEIMITTEL-CINACALCETLIT210322

PATIENT
  Age: 56 Year
  Sex: Female
  Weight: 60 kg

DRUGS (4)
  1. CINACALCET [Suspect]
     Active Substance: CINACALCET
     Indication: Hyperparathyroidism
     Dosage: 30 MILLIGRAM, QD, TABLET
     Route: 048
  2. CINACALCET [Suspect]
     Active Substance: CINACALCET
     Dosage: 60 MILLIGRAM, QD, TABLET
     Route: 048
     Dates: start: 20180827
  3. ACEMETACIN [Concomitant]
     Active Substance: ACEMETACIN
     Indication: Ankylosing spondylitis
     Dosage: 90 MILLIGRAM, QD
     Route: 065
  4. AMLODIPINE [Concomitant]
     Active Substance: AMLODIPINE BESYLATE
     Indication: Hypertension
     Dosage: 5 MILLIGRAM, QD
     Route: 065

REACTIONS (5)
  - Parathyroid tumour benign [Recovered/Resolved]
  - Post procedural haematoma [Unknown]
  - Back pain [Unknown]
  - Hypocalcaemia [Recovered/Resolved]
  - Drug ineffective [Unknown]

NARRATIVE: CASE EVENT DATE: 20180913
